FAERS Safety Report 7001116-6 (Version None)
Quarter: 2010Q3

REPORT INFORMATION
  Report Type: 
  Country: None (occurrence: None)
  Receive Date: 20100920
  Receipt Date: 20100908
  Transmission Date: 20110219
  Serious: Yes (Other)
  Sender: FDA-Public Use
  Company Number: PHHY2010PA60440

PATIENT
  Age: 54 Year
  Sex: Male

DRUGS (1)
  1. EXFORGE [Suspect]
     Dosage: TABLET (160/5 MG)

REACTIONS (2)
  - CORONARY ARTERY BYPASS [None]
  - CORONARY ARTERY OCCLUSION [None]
